FAERS Safety Report 5885678-8 (Version None)
Quarter: 2008Q3

REPORT INFORMATION
  Report Type: 
  Country: None (occurrence: None)
  Receive Date: 20080912
  Receipt Date: 20080901
  Transmission Date: 20090109
  Serious: Yes (Hospitalization)
  Sender: FDA-Public Use
  Company Number: 2008-03228

PATIENT
  Age: 59 Year
  Sex: Male

DRUGS (1)
  1. VELCADE [Suspect]
     Indication: MULTIPLE MYELOMA
     Dosage: 1.3 MG/M2, INTRAVENOUS
     Route: 042
     Dates: start: 20080307

REACTIONS (5)
  - DISEASE PROGRESSION [None]
  - GAIT DISTURBANCE [None]
  - MULTIPLE MYELOMA [None]
  - NERVE INJURY [None]
  - OSTEOLYSIS [None]
